FAERS Safety Report 8287598-0 (Version None)
Quarter: 2012Q2

REPORT INFORMATION
  Report Type: 
  Country: None (occurrence: None)
  Receive Date: 20120416
  Receipt Date: 20120409
  Transmission Date: 20120825
  Serious: Yes (Other)
  Sender: FDA-Public Use
  Company Number: PHEH2012US005054

PATIENT
  Sex: Male
  Weight: 93.424 kg

DRUGS (4)
  1. GILENYA [Suspect]
     Dosage: 1 DF, QD
     Route: 048
     Dates: start: 20120317
  2. ALBUTEROL [Concomitant]
  3. ADVAIR DISKUS 100/50 [Concomitant]
  4. GILENYA [Suspect]
     Indication: MULTIPLE SCLEROSIS
     Dosage: 1 DF, QD
     Route: 048
     Dates: start: 20120223, end: 20120301

REACTIONS (2)
  - URTICARIA [None]
  - LIP SWELLING [None]
